FAERS Safety Report 4679687-4 (Version None)
Quarter: 2005Q2

REPORT INFORMATION
  Report Type: 
  Country: None (occurrence: None)
  Receive Date: 20050531
  Receipt Date: 20050516
  Transmission Date: 20051028
  Serious: Yes (Hospitalization, Disabling, Other)
  Sender: FDA-Public Use
  Company Number: 2004070397

PATIENT
  Age: 42 Year
  Sex: Male

DRUGS (7)
  1. NEURONTIN [Suspect]
     Indication: ANXIETY
     Dosage: 1200 MG (300 MG, 4 IN 1 D), ORAL
     Route: 048
     Dates: start: 19991002, end: 20040101
  2. NEURONTIN [Suspect]
     Indication: BIPOLAR DISORDER
     Dosage: 1200 MG (300 MG, 4 IN 1 D), ORAL
     Route: 048
     Dates: start: 19991002, end: 20040101
  3. NEURONTIN [Suspect]
     Indication: DEPRESSION
     Dosage: 1200 MG (300 MG, 4 IN 1 D), ORAL
     Route: 048
     Dates: start: 19991002, end: 20040101
  4. NEURONTIN [Suspect]
     Indication: OBSESSIVE-COMPULSIVE DISORDER
     Dosage: 1200 MG (300 MG, 4 IN 1 D), ORAL
     Route: 048
     Dates: start: 19991002, end: 20040101
  5. CLONAZEPAM [Suspect]
     Indication: ILL-DEFINED DISORDER
     Dosage: 2 MG 90.5 MG, 4 IN 1 D), ORAL
     Route: 048
     Dates: start: 19960101
  6. PROZAC [Concomitant]
  7. ESKALITH [Concomitant]

REACTIONS (18)
  - AGITATION [None]
  - ALCOHOLISM [None]
  - ANGER [None]
  - ANXIETY [None]
  - BIPOLAR DISORDER [None]
  - DEPRESSION [None]
  - DISABILITY [None]
  - DRUG INEFFECTIVE [None]
  - DRUG LEVEL DECREASED [None]
  - DRUG TOLERANCE [None]
  - FEELING ABNORMAL [None]
  - INTENTIONAL MISUSE [None]
  - PAIN [None]
  - SEXUAL DYSFUNCTION [None]
  - SOMNOLENCE [None]
  - STRESS AT WORK [None]
  - SUICIDAL IDEATION [None]
  - SUICIDE ATTEMPT [None]
